FAERS Safety Report 13881851 (Version 2)
Quarter: 2017Q4

REPORT INFORMATION
  Report Type: Report from Study
  Country: US (occurrence: US)
  Receive Date: 20170818
  Receipt Date: 20171019
  Transmission Date: 20180320
  Serious: Yes (Other)
  Sender: FDA-Public Use
  Company Number: US-BAYER-2017-083193

PATIENT
  Age: 76 Year
  Sex: Male

DRUGS (3)
  1. XOFIGO [Suspect]
     Active Substance: RADIUM RA-223 DICHLORIDE
     Indication: PROSTATE CANCER STAGE IV
     Dosage: UNK UNK, Q4WK
     Route: 042
     Dates: start: 201701, end: 201701
  2. XOFIGO [Suspect]
     Active Substance: RADIUM RA-223 DICHLORIDE
     Indication: METASTASES TO BONE
     Dosage: 138.60 ?CI, Q4WK
     Route: 042
     Dates: start: 20170404, end: 20170404
  3. JEVTANA [Concomitant]
     Active Substance: CABAZITAXEL
     Dosage: UNK
     Dates: start: 201705

REACTIONS (4)
  - Pulmonary mass [None]
  - Metastases to bone [None]
  - Renal failure [None]
  - Metastases to lymph nodes [None]

NARRATIVE: CASE EVENT DATE: 2017
